FAERS Safety Report 5258798-9 (Version None)
Quarter: 2007Q1

REPORT INFORMATION
  Report Type: 
  Country: None (occurrence: None)
  Receive Date: 20070305
  Receipt Date: 20070215
  Transmission Date: 20070707
  Serious: Yes (Other)
  Sender: FDA-Public Use
  Company Number: 2007BI004019

PATIENT
  Sex: Male

DRUGS (5)
  1. NATALIZUMAB [Suspect]
     Indication: MULTIPLE SCLEROSIS
     Dosage: 300 MG; QM; IV
     Route: 042
     Dates: start: 20061114, end: 20070119
  2. LESCOL [Concomitant]
  3. DESYREL [Concomitant]
  4. EFFEXOR [Concomitant]
  5. ALLEGRA [Concomitant]

REACTIONS (2)
  - LUNG NEOPLASM MALIGNANT [None]
  - METASTASES TO SPINE [None]
